FAERS Safety Report 23443888 (Version 3)
Quarter: 2024Q2

REPORT INFORMATION
  Report Type: Spontaneous
  Country: US (occurrence: US)
  Receive Date: 20240125
  Receipt Date: 20240614
  Transmission Date: 20240716
  Serious: Yes (Death, Other)
  Sender: FDA-Public Use
  Company Number: US-PFIZER INC-PV202400011087

PATIENT
  Age: 72 Year
  Sex: Female
  Weight: 101.13 kg

DRUGS (2)
  1. IBRANCE [Suspect]
     Active Substance: PALBOCICLIB
     Indication: Breast cancer metastatic
     Dosage: 100 MG ONCE A DAY FOR 21 DAYS OFF 7 DAYS
     Dates: end: 202401
  2. LETROZOLE [Concomitant]
     Active Substance: LETROZOLE
     Dosage: 2.5 MG

REACTIONS (4)
  - Neoplasm progression [Fatal]
  - Internal haemorrhage [Unknown]
  - Haematochezia [Unknown]
  - Dysstasia [Unknown]

NARRATIVE: CASE EVENT DATE: 20240122
